FAERS Safety Report 10724411 (Version 2)
Quarter: 2015Q1

REPORT INFORMATION
  Report Type: Spontaneous
  Country: US (occurrence: None)
  Receive Date: 20150115
  Receipt Date: 20150130
  Transmission Date: 20150721
  Serious: Yes (Hospitalization)
  Sender: FDA-Public Use
  Company Number: 2015-US-000267

PATIENT
  Age: 50 Year
  Sex: Male
  Weight: 118.4 kg

DRUGS (3)
  1. XYREM [Suspect]
     Active Substance: SODIUM OXYBATE
     Indication: APNOEA
     Route: 048
     Dates: start: 200610, end: 201405
  2. VICTOZA [Concomitant]
     Active Substance: LIRAGLUTIDE
  3. LANTUS [Concomitant]
     Active Substance: INSULIN GLARGINE

REACTIONS (4)
  - Herpes zoster [None]
  - Stress [None]
  - Off label use [None]
  - Pulmonary embolism [None]

NARRATIVE: CASE EVENT DATE: 2007
